FAERS Safety Report 4997789-X (Version None)
Quarter: 2006Q2

REPORT INFORMATION
  Report Type: 
  Country: None (occurrence: None)
  Receive Date: 20060510
  Receipt Date: 20060502
  Transmission Date: 20061013
  Serious: Yes (Death)
  Sender: FDA-Public Use
  Company Number: FR-JNJFOC-20060500875

PATIENT
  Age: 27 Year
  Sex: Male

DRUGS (14)
  1. HALDOL [Suspect]
     Route: 065
  2. HALDOL [Suspect]
     Indication: PARANOIA
     Route: 065
  3. LEPTICUR [Suspect]
     Route: 048
  4. LEPTICUR [Suspect]
     Indication: PARANOIA
     Route: 048
  5. TERCIAN [Suspect]
     Route: 048
  6. TERCIAN [Suspect]
     Indication: PARANOIA
     Route: 048
  7. THERALENE [Suspect]
     Route: 048
  8. THERALENE [Suspect]
     Indication: PARANOIA
     Route: 048
  9. DIAZEPAM [Suspect]
     Route: 048
  10. DIAZEPAM [Suspect]
     Indication: PARANOIA
     Route: 048
  11. METHADONE HCL [Suspect]
     Dosage: DOSE 30MG/J
     Route: 048
  12. NORDAZ [Concomitant]
  13. DI-ANTALVIC [Concomitant]
  14. DI-ANTALVIC [Concomitant]

REACTIONS (11)
  - CYANOSIS [None]
  - DEATH [None]
  - INJURY ASPHYXIATION [None]
  - INTESTINAL OBSTRUCTION [None]
  - OBSTRUCTIVE AIRWAYS DISORDER [None]
  - PETECHIAE [None]
  - PULMONARY CONGESTION [None]
  - PULMONARY OEDEMA [None]
  - SOMNOLENCE [None]
  - SPLEEN CONGESTION [None]
  - VOMITING [None]
